FAERS Safety Report 4458286-3 (Version None)
Quarter: 2004Q3

REPORT INFORMATION
  Report Type: 
  Country: None (occurrence: None)
  Receive Date: 20040917
  Receipt Date: 20040520
  Transmission Date: 20050211
  Serious: Yes (Other)
  Sender: FDA-Public Use
  Company Number: US-JNJFOC-20040102135

PATIENT
  Sex: Female

DRUGS (4)
  1. TOPAMAX [Suspect]
     Indication: ANXIETY
     Dosage: 25 MG, 2 IN 1 DAY, ORAL
     Route: 048
  2. TOPAMAX [Suspect]
     Indication: DEPRESSION
     Dosage: 25 MG, 2 IN 1 DAY, ORAL
     Route: 048
  3. TOPAMAX [Suspect]
     Indication: MOOD SWINGS
     Dosage: 25 MG, 2 IN 1 DAY, ORAL
     Route: 048
  4. PAXIL [Concomitant]

REACTIONS (6)
  - AGGRESSION [None]
  - HOMICIDAL IDEATION [None]
  - MEMORY IMPAIRMENT [None]
  - MENTAL DISORDER [None]
  - SUICIDAL IDEATION [None]
  - SUICIDE ATTEMPT [None]
